FAERS Safety Report 5767824-X (Version None)
Quarter: 2008Q2

REPORT INFORMATION
  Report Type: 
  Country: None (occurrence: None)
  Receive Date: 20080612
  Receipt Date: 20080602
  Transmission Date: 20081010
  Serious: Yes (Hospitalization, Disabling, Other)
  Sender: FDA-Public Use
  Company Number: PHHO2007CA05495

PATIENT
  Sex: Male
  Weight: 69.5 kg

DRUGS (1)
  1. TASIGNA [Suspect]
     Indication: CHRONIC MYELOMONOCYTIC LEUKAEMIA
     Dosage: 400 MG, BID
     Route: 048
     Dates: start: 20070215, end: 20070228

REACTIONS (3)
  - LICHEN PLANUS [None]
  - OEDEMA PERIPHERAL [None]
  - RASH [None]
